FAERS Safety Report 6362670-0 (Version None)
Quarter: 2009Q3

REPORT INFORMATION
  Report Type: 
  Country: None (occurrence: None)
  Receive Date: 20090919
  Receipt Date: 20090608
  Transmission Date: 20100115
  Serious: No
  Sender: FDA-Public Use
  Company Number: US-ABBOTT-09P-163-0578552-00

PATIENT
  Sex: Female
  Weight: 53.572 kg

DRUGS (6)
  1. HUMIRA [Suspect]
     Indication: RHEUMATOID ARTHRITIS
     Dates: start: 20090401, end: 20090501
  2. HUMIRA [Suspect]
     Dates: start: 20090501, end: 20090501
  3. HUMIRA [Suspect]
     Dates: start: 20090501
  4. COZAAR [Concomitant]
     Indication: HYPERTENSION
  5. SIMVASTATIN [Concomitant]
     Indication: BLOOD CHOLESTEROL INCREASED
  6. DARVOCET-N 100 [Concomitant]
     Indication: MIGRAINE

REACTIONS (2)
  - VISION BLURRED [None]
  - VISUAL IMPAIRMENT [None]
